FAERS Safety Report 4505333-6 (Version None)
Quarter: 2004Q4

REPORT INFORMATION
  Report Type: 
  Country: None (occurrence: None)
  Receive Date: 20041118
  Receipt Date: 20041118
  Transmission Date: 20050328
  Serious: Yes (Disabling)
  Sender: FDA-Public Use
  Company Number: None

PATIENT
  Sex: Female
  Weight: 90.7194 kg

DRUGS (1)
  1. CLORAZEPAM [Suspect]
     Indication: SCHIZOPHRENIA
     Dosage: 0.5 MG PO HS
     Route: 048

REACTIONS (2)
  - ANXIETY [None]
  - IRRITABILITY [None]
